FAERS Safety Report 5895700-0 (Version None)
Quarter: 2008Q3

REPORT INFORMATION
  Report Type: 
  Country: None (occurrence: None)
  Receive Date: 20080924
  Receipt Date: 20070208
  Transmission Date: 20090109
  Serious: No
  Sender: FDA-Public Use
  Company Number: US-BAYER-200714304BWH

PATIENT
  Sex: Female

DRUGS (2)
  1. CIPRO [Suspect]
     Indication: DRUG USE FOR UNKNOWN INDICATION
  2. ALBUTEROL [Concomitant]

REACTIONS (2)
  - HYPERSENSITIVITY [None]
  - SWOLLEN TONGUE [None]
